FAERS Safety Report 5806208-2 (Version None)
Quarter: 2008Q3

REPORT INFORMATION
  Report Type: 
  Country: None (occurrence: None)
  Receive Date: 20080709
  Receipt Date: 20080709
  Transmission Date: 20090109
  Serious: Yes (Disabling)
  Sender: FDA-Public Use
  Company Number: None

PATIENT
  Age: 51 Year
  Sex: Male

DRUGS (2)
  1. MARCAINE HYDROCHLORIDE W/ EPINEPHRINE [Suspect]
     Indication: BURSITIS
     Dosage: 270 ML 4 ML/HR 014  : 200 CC REFILL, 0.25%
     Dates: start: 20040714, end: 20040719
  2. MARCAINE HYDROCHLORIDE W/ EPINEPHRINE [Suspect]
     Indication: JOINT INJURY
     Dosage: 270 ML 4 ML/HR 014  : 200 CC REFILL, 0.25%
     Dates: start: 20040714, end: 20040719

REACTIONS (2)
  - CHONDROMALACIA [None]
  - PERIARTHRITIS [None]
